FAERS Safety Report 15191465 (Version 1)
Quarter: 2018Q3

REPORT INFORMATION
  Report Type: Spontaneous
  Country: CA (occurrence: CA)
  Receive Date: 20180724
  Receipt Date: 20180724
  Transmission Date: 20181010
  Serious: Yes (Congenital Anomaly, Other)
  Sender: FDA-Public Use
  Company Number: CA-MYLANLABS-2018M1055816

PATIENT
  Sex: Male

DRUGS (2)
  1. VALPROIC ACID. [Suspect]
     Active Substance: VALPROIC ACID
     Indication: PRODUCT USED FOR UNKNOWN INDICATION
     Dosage: 1000 MG, QD
     Route: 064
  2. FOLIC ACID. [Concomitant]
     Active Substance: FOLIC ACID
     Indication: PROPHYLAXIS OF NEURAL TUBE DEFECT
     Dosage: 5 MG, QD

REACTIONS (16)
  - Seizure [Unknown]
  - Anxiety [Unknown]
  - Intellectual disability [Unknown]
  - Deafness [Unknown]
  - Foetal anticonvulsant syndrome [Unknown]
  - Fracture [Unknown]
  - Foetal exposure during pregnancy [Recovered/Resolved]
  - Language disorder [Unknown]
  - Osteopenia [Unknown]
  - Visual impairment [Unknown]
  - Dysmorphism [Unknown]
  - Poor feeding infant [Unknown]
  - Muscle disorder [Unknown]
  - Keratosis pilaris [Unknown]
  - Hypotonia [Unknown]
  - Developmental delay [Unknown]
